FAERS Safety Report 8573119-1 (Version None)
Quarter: 2012Q3

REPORT INFORMATION
  Report Type: 
  Country: None (occurrence: None)
  Receive Date: 20120806
  Receipt Date: 20120731
  Transmission Date: 20120928
  Serious: Yes (Hospitalization)
  Sender: FDA-Public Use
  Company Number: US-ACTELION-A-US2012-67278

PATIENT
  Age: 68 Year
  Sex: Female

DRUGS (3)
  1. TRACLEER [Suspect]
     Indication: PULMONARY ARTERIAL HYPERTENSION
     Dosage: UNK
     Route: 048
     Dates: start: 20090302
  2. ASPIRIN [Concomitant]
  3. PLAVIX [Concomitant]

REACTIONS (2)
  - SKIN IMPLANT [None]
  - LIMB DISCOMFORT [None]
